FAERS Safety Report 7008656-4 (Version None)
Quarter: 2010Q3

REPORT INFORMATION
  Report Type: 
  Country: None (occurrence: None)
  Receive Date: 20100921
  Receipt Date: 20100902
  Transmission Date: 20110219
  Serious: Yes (Hospitalization)
  Sender: FDA-Public Use
  Company Number: 2008001805

PATIENT
  Age: 64 Year
  Sex: Female
  Weight: 55 kg

DRUGS (4)
  1. ERLOTINIB HYDROCHLORIDE [Suspect]
     Indication: LUNG ADENOCARCINOMA
     Dosage: 150 MG, QD; ORAL
     Route: 048
     Dates: start: 20080328, end: 20080430
  2. GASTER D [Concomitant]
  3. TOCOPHEROL CONCENTRATE CAP [Concomitant]
  4. LEVOFLOXACIN [Concomitant]

REACTIONS (6)
  - ANAEMIA [None]
  - HAEMOTHORAX [None]
  - MALIGNANT NEOPLASM PROGRESSION [None]
  - NON-SMALL CELL LUNG CANCER STAGE IV [None]
  - PLEURAL EFFUSION [None]
  - RASH [None]
